FAERS Safety Report 8433138-2 (Version None)
Quarter: 2012Q2

REPORT INFORMATION
  Report Type: 
  Country: None (occurrence: None)
  Receive Date: 20120613
  Receipt Date: 20120605
  Transmission Date: 20120825
  Serious: Yes (Life-Threatening, Hospitalization)
  Sender: FDA-Public Use
  Company Number: BE-ROCHE-1076969

PATIENT
  Sex: Male
  Weight: 75 kg

DRUGS (6)
  1. ROFERON-A [Suspect]
     Dosage: DAILY DOSE: 3 10E6 IU
     Route: 058
     Dates: start: 20110119, end: 20110213
  2. TRITACE [Concomitant]
     Dates: start: 20040101
  3. ROFERON-A [Suspect]
     Indication: METASTATIC RENAL CELL CARCINOMA
     Dosage: DAILY DOSE: 9 10E6 IU
     Route: 058
     Dates: start: 20100901, end: 20101110
  4. AVASTIN [Suspect]
     Indication: METASTATIC RENAL CELL CARCINOMA
     Route: 042
     Dates: start: 20100901, end: 20110216
  5. ROFERON-A [Suspect]
     Dosage: DAILY DOSE: 6 10E6 IU
     Route: 058
     Dates: start: 20101114, end: 20110106
  6. VALSARTAN [Concomitant]
     Dates: start: 20101209

REACTIONS (2)
  - VASCULAR PSEUDOANEURYSM [None]
  - HYPERTENSION [None]
